FAERS Safety Report 10081064 (Version 3)
Quarter: 2018Q4

REPORT INFORMATION
  Report Type: Spontaneous
  Country: US (occurrence: US)
  Receive Date: 20140416
  Receipt Date: 20181011
  Transmission Date: 20190204
  Serious: Yes (Other)
  Sender: FDA-Public Use
  Company Number: US-PFIZER INC-2014103862

PATIENT
  Sex: Female
  Weight: 82.5 kg

DRUGS (1)
  1. AMLODIPINE BESILATE [Suspect]
     Active Substance: AMLODIPINE BESYLATE
     Indication: HYPERTENSION
     Dosage: UNK

REACTIONS (5)
  - Insomnia [Recovered/Resolved]
  - Alopecia [Unknown]
  - Heart rate decreased [Recovered/Resolved]
  - Blood pressure inadequately controlled [Unknown]
  - Apparent death [Unknown]
